FAERS Safety Report 6799842-7 (Version None)
Quarter: 2010Q2

REPORT INFORMATION
  Report Type: 
  Country: None (occurrence: None)
  Receive Date: 20100615
  Receipt Date: 20100602
  Transmission Date: 20101027
  Serious: Yes (Other)
  Sender: FDA-Public Use
  Company Number: WAES 1006USA00958

PATIENT
  Age: 50 Year
  Sex: Male

DRUGS (2)
  1. FOSAMAX [Suspect]
     Indication: HYPERCALCAEMIA
     Dosage: IV
     Route: 042
  2. ZOMETA [Suspect]
     Indication: HYPERCALCAEMIA
     Dosage: IV
     Route: 042

REACTIONS (4)
  - OSTEONECROSIS OF JAW [None]
  - OSTEOSCLEROSIS [None]
  - RESORPTION BONE INCREASED [None]
  - TOOTH IMPACTED [None]
